FAERS Safety Report 20115387 (Version 1)
Quarter: 2021Q4

REPORT INFORMATION
  Report Type: Report from Study
  Country: CO (occurrence: CO)
  Receive Date: 20211125
  Receipt Date: 20211125
  Transmission Date: 20220303
  Serious: Yes (Other)
  Sender: FDA-Public Use
  Company Number: CO-ABBVIE-21K-036-4097585-00

PATIENT
  Sex: Female
  Weight: 64 kg

DRUGS (7)
  1. HUMIRA [Suspect]
     Active Substance: ADALIMUMAB
     Indication: Psoriasis
     Route: 058
     Dates: start: 20161101
  2. HUMIRA [Suspect]
     Active Substance: ADALIMUMAB
     Indication: Psoriasis
     Route: 058
     Dates: end: 20210519
  3. BETAMETHASONE DIPROPIONATE\CLOTRIMAZOLE [Concomitant]
     Active Substance: BETAMETHASONE DIPROPIONATE\CLOTRIMAZOLE
     Indication: Pruritus
     Route: 061
     Dates: start: 2021
  4. COVID-19 VACCINE [Concomitant]
     Indication: COVID-19 prophylaxis
     Dosage: 1ST DOSE
     Route: 030
  5. COVID-19 VACCINE [Concomitant]
     Dosage: 2ND DOSE
     Route: 030
     Dates: start: 2021, end: 2021
  6. NAPROXEN [Concomitant]
     Active Substance: NAPROXEN
     Indication: Hypertension
  7. METHOTREXATE [Concomitant]
     Active Substance: METHOTREXATE
     Indication: Pain

REACTIONS (23)
  - Intervertebral disc protrusion [Recovering/Resolving]
  - Vision blurred [Recovering/Resolving]
  - Thyroid disorder [Recovering/Resolving]
  - Dizziness [Recovering/Resolving]
  - Erythema of eyelid [Recovering/Resolving]
  - Feeling of despair [Recovering/Resolving]
  - Hyperhidrosis [Unknown]
  - Photosensitivity reaction [Recovering/Resolving]
  - Hypertension [Recovering/Resolving]
  - Alopecia [Unknown]
  - Blood triglycerides increased [Recovering/Resolving]
  - Blood cholesterol increased [Recovering/Resolving]
  - Tachycardia [Recovering/Resolving]
  - Psoriasis [Recovering/Resolving]
  - Herpes zoster [Recovering/Resolving]
  - Weight decreased [Recovering/Resolving]
  - Pain in extremity [Recovering/Resolving]
  - Osteoarthritis [Recovering/Resolving]
  - Nervousness [Recovering/Resolving]
  - Blood cholesterol increased [Recovering/Resolving]
  - Blood triglycerides increased [Recovered/Resolved]
  - Arthralgia [Recovering/Resolving]
  - Bone pain [Recovering/Resolving]

NARRATIVE: CASE EVENT DATE: 20170101
